FAERS Safety Report 5915537-3 (Version None)
Quarter: 2008Q4

REPORT INFORMATION
  Report Type: 
  Country: None (occurrence: None)
  Receive Date: 20081010
  Receipt Date: 20080721
  Transmission Date: 20090506
  Serious: No
  Sender: FDA-Public Use
  Company Number: A0736718A

PATIENT
  Age: 37 Year
  Sex: Female
  Weight: 80.5 kg

DRUGS (2)
  1. TYKERB [Suspect]
     Indication: BREAST CANCER RECURRENT
     Route: 048
  2. XELODA [Suspect]
     Indication: BREAST CANCER RECURRENT
     Route: 048

REACTIONS (3)
  - ANXIETY [None]
  - DIARRHOEA [None]
  - NAUSEA [None]
